FAERS Safety Report 17835075 (Version 4)
Quarter: 2020Q3

REPORT INFORMATION
  Report Type: Spontaneous
  Country: BR (occurrence: BR)
  Receive Date: 20200528
  Receipt Date: 20200807
  Transmission Date: 20201103
  Serious: Yes (Death, Other)
  Sender: FDA-Public Use
  Company Number: BR-PFIZER INC-2020204780

PATIENT
  Age: 73 Year
  Sex: Male
  Weight: 73 kg

DRUGS (19)
  1. SODIUM BICARBONATE. [Concomitant]
     Active Substance: SODIUM BICARBONATE
     Dosage: UNK
     Route: 042
     Dates: start: 20200331, end: 20200401
  2. POTASSIUM CHLORIDE. [Concomitant]
     Active Substance: POTASSIUM CHLORIDE
     Dosage: UNK
     Route: 042
     Dates: start: 20200331, end: 20200401
  3. ZITROMAX [Suspect]
     Active Substance: AZITHROMYCIN
     Indication: COVID-19
     Dosage: 500 MG, ONCE A DAY
     Route: 042
     Dates: start: 20200328, end: 20200401
  4. OSELTAMIVIR [Concomitant]
     Active Substance: OSELTAMIVIR
     Dosage: 75 MG, 1X/DAY
     Route: 006
     Dates: start: 20200330, end: 20200331
  5. TAZOCIN [Concomitant]
     Active Substance: PIPERACILLIN SODIUM\TAZOBACTAM SODIUM
     Dosage: 4.5 G, 4X/DAY EVERY 6 HOURS
     Route: 042
     Dates: start: 20200328
  6. CORTISONAL [HYDROCORTISONE] [Concomitant]
     Dosage: 100 MG, 2X/DAY EVERY 12 HOURS
     Route: 042
     Dates: start: 20200329, end: 20200402
  7. ENCRISE [Concomitant]
     Dosage: 20 IU, AS NEEDED
     Route: 042
     Dates: start: 20200329, end: 20200402
  8. FENTANEST [FENTANYL CITRATE] [Concomitant]
     Dosage: 2500 UG, AS NEEDED
     Route: 042
     Dates: start: 20200329, end: 20200401
  9. NOREPINEPHRINE BITARTRATE. [Concomitant]
     Active Substance: NOREPINEPHRINE BITARTRATE
     Dosage: 32 MG, AS NEEDED
     Route: 042
     Dates: start: 20200329, end: 20200402
  10. BROMOPRIDA [Concomitant]
     Dosage: 10 MG, 3X/DAY EVERY 8 HOURS
     Route: 042
     Dates: start: 20200329, end: 20200401
  11. OSELTAMIVIR [Concomitant]
     Active Substance: OSELTAMIVIR
     Dosage: 75 MG, 2X/DAY
     Route: 006
     Dates: start: 20200328
  12. SODIUM CHLORIDE. [Concomitant]
     Active Substance: SODIUM CHLORIDE
     Dosage: UNK
     Route: 042
     Dates: start: 20200331, end: 20200331
  13. HEPAMAX S [Concomitant]
     Dosage: UNK
     Dates: start: 20200331, end: 20200331
  14. REUQUINOL [Interacting]
     Active Substance: HYDROXYCHLOROQUINE SULFATE
     Indication: COVID-19
     Dosage: 400 MG, EVERY 12 HOURS BEFORE SLEEP
     Route: 006
     Dates: start: 20200329
  15. REUQUINOL [Interacting]
     Active Substance: HYDROXYCHLOROQUINE SULFATE
     Dosage: 400 MG, ONCE A DAY
     Route: 048
     Dates: start: 20200330, end: 20200401
  16. HEMOFOL [Concomitant]
     Dosage: 5000 IU, 2X/DAY (EVERY 12 HOURS)
     Route: 058
     Dates: start: 20200330, end: 20200401
  17. TAZOCIN [Concomitant]
     Active Substance: PIPERACILLIN SODIUM\TAZOBACTAM SODIUM
     Dosage: 4.5 G, 3X/DAY EVERY 8 HOURS
     Route: 042
     Dates: end: 20200401
  18. DORMIRE [MIDAZOLAM HYDROCHLORIDE] [Concomitant]
     Dosage: 100 MG, AS NEEDED
     Route: 042
     Dates: start: 20200329, end: 20200401
  19. NOVALGINA [Concomitant]
     Active Substance: METAMIZOLE SODIUM
     Dosage: 1 G, AS NEEDED
     Route: 042
     Dates: start: 20200329, end: 20200331

REACTIONS (6)
  - Potentiating drug interaction [Fatal]
  - Electrocardiogram QT prolonged [Fatal]
  - Product use in unapproved indication [Unknown]
  - COVID-19 [Fatal]
  - Condition aggravated [Fatal]
  - Off label use [Unknown]

NARRATIVE: CASE EVENT DATE: 20200328
